FAERS Safety Report 4557971-2 (Version None)
Quarter: 2005Q1

REPORT INFORMATION
  Report Type: 
  Country: None (occurrence: None)
  Receive Date: 20050121
  Receipt Date: 20040324
  Transmission Date: 20050727
  Serious: No
  Sender: FDA-Public Use
  Company Number: US-BRISTOL-MYERS SQUIBB COMPANY-12543062

PATIENT
  Age: 36 Year
  Sex: Female

DRUGS (6)
  1. SERZONE [Suspect]
     Indication: DEPRESSION
     Dosage: FROM 100 MG TWICE DAILY TO 200 MG TWICE DAILY
     Route: 048
     Dates: start: 20010201, end: 20020301
  2. ATIVAN [Concomitant]
     Dosage: JUL-01 TOOK AS NECESSARY SEVERAL TIMES MONTHLY
     Dates: start: 20010201, end: 20020301
  3. NEURONTIN [Concomitant]
  4. ANAPROX [Concomitant]
  5. ZYRTEC [Concomitant]
  6. ORTHO-NOVUM [Concomitant]

REACTIONS (2)
  - ALANINE AMINOTRANSFERASE INCREASED [None]
  - ASPARTATE AMINOTRANSFERASE INCREASED [None]
